FAERS Safety Report 10745321 (Version 2)
Quarter: 2015Q1

REPORT INFORMATION
  Report Type: Spontaneous
  Country: CA (occurrence: CA)
  Receive Date: 20150128
  Receipt Date: 20150312
  Transmission Date: 20150721
  Serious: Yes (Other)
  Sender: FDA-Public Use
  Company Number: CA-ABBVIE-15P-028-1339103-00

PATIENT
  Age: 10 Year
  Sex: Female
  Weight: 29.06 kg

DRUGS (1)
  1. BIAXIN [Suspect]
     Active Substance: CLARITHROMYCIN
     Indication: EAR INFECTION
     Dosage: 250MG/5ML
     Route: 048
     Dates: start: 20140907

REACTIONS (5)
  - Tremor [Unknown]
  - Anxiety [Unknown]
  - Insomnia [Unknown]
  - Nausea [Unknown]
  - Abdominal pain [Unknown]

NARRATIVE: CASE EVENT DATE: 20140907
